FAERS Safety Report 16052892 (Version 1)
Quarter: 2019Q1

REPORT INFORMATION
  Report Type: Spontaneous
  Country: US (occurrence: US)
  Receive Date: 20190308
  Receipt Date: 20190308
  Transmission Date: 20190418
  Serious: Yes (Hospitalization, Other)
  Sender: FDA-Public Use
  Company Number: US-CASPER PHARMA LLC-2019CAS000084

PATIENT
  Age: 8 Year
  Sex: Female

DRUGS (1)
  1. PENICILLIN G BENZATHINE [Suspect]
     Active Substance: PENICILLIN G BENZATHINE
     Indication: PHARYNGITIS STREPTOCOCCAL
     Dosage: 1.2 MILLION INTERNATIONAL UNIT
     Route: 030

REACTIONS (1)
  - Muscle necrosis [Recovering/Resolving]
